FAERS Safety Report 5951298-X (Version None)
Quarter: 2008Q4

REPORT INFORMATION
  Report Type: 
  Country: None (occurrence: None)
  Receive Date: 20081022
  Receipt Date: 20080807
  Transmission Date: 20090506
  Serious: No
  Sender: FDA-Public Use
  Company Number: ALL1-2008-02042

PATIENT
  Age: 5 Year
  Sex: Male
  Weight: 20.4 kg

DRUGS (2)
  1. VYVANSE [Suspect]
     Indication: ATTENTION DEFICIT/HYPERACTIVITY DISORDER
     Dosage: 30 MG, 1X/DAY: QD, ORAL
     Route: 048
     Dates: start: 20080716, end: 20080801
  2. ZYRTEC [Concomitant]

REACTIONS (3)
  - DRUG EFFECT INCREASED [None]
  - INSOMNIA [None]
  - RESTLESSNESS [None]
